FAERS Safety Report 8424217-4 (Version None)
Quarter: 2012Q2

REPORT INFORMATION
  Report Type: 
  Country: None (occurrence: None)
  Receive Date: 20120608
  Receipt Date: 20120227
  Transmission Date: 20120825
  Serious: No
  Sender: FDA-Public Use
  Company Number: US-ASTRAZENECA-2012SE13548

PATIENT
  Age: 60 Year
  Sex: Female
  Weight: 74.8 kg

DRUGS (2)
  1. ALBUTEROL [Concomitant]
     Indication: ASTHMA
  2. PULMICORT FLEXHALER [Suspect]
     Indication: ASTHMA
     Dosage: 1 PUFF DAILY, 180 MCG
     Route: 055
     Dates: start: 20120120

REACTIONS (6)
  - CONDITION AGGRAVATED [None]
  - WHEEZING [None]
  - OFF LABEL USE [None]
  - DRUG INEFFECTIVE [None]
  - DYSPNOEA [None]
  - COUGH [None]
